FAERS Safety Report 6360216-4 (Version None)
Quarter: 2009Q3

REPORT INFORMATION
  Report Type: 
  Country: None (occurrence: None)
  Receive Date: 20090917
  Receipt Date: 20090903
  Transmission Date: 20100115
  Serious: No
  Sender: FDA-Public Use
  Company Number: US-B.I. PHARMACEUTICALS,INC./RIDGEFIELD-2009-BP-10360BP

PATIENT
  Age: 75 Year
  Sex: Female

DRUGS (2)
  1. COMBIVENT [Suspect]
  2. XOPENEX HFA [Suspect]
     Indication: CHRONIC OBSTRUCTIVE PULMONARY DISEASE
     Dosage: 270 MCG
     Route: 055
     Dates: start: 20090701

REACTIONS (5)
  - DEPRESSED MOOD [None]
  - DIZZINESS [None]
  - DRUG INEFFECTIVE [None]
  - DYSPNOEA [None]
  - TREMOR [None]
